FAERS Safety Report 6486710-3 (Version None)
Quarter: 2009Q4

REPORT INFORMATION
  Report Type: 
  Country: None (occurrence: None)
  Receive Date: 20091210
  Receipt Date: 20091201
  Transmission Date: 20100525
  Serious: Yes (Death)
  Sender: FDA-Public Use
  Company Number: JP-ROCHE-673465

PATIENT
  Age: 70 Year
  Sex: Male

DRUGS (1)
  1. TAMIFLU [Suspect]
     Dosage: DOSE, FREQUENCY UNSPECIFIED.
     Route: 048
     Dates: start: 20091126

REACTIONS (1)
  - ACUTE RESPIRATORY FAILURE [None]
